FAERS Safety Report 6317914-8 (Version None)
Quarter: 2009Q3

REPORT INFORMATION
  Report Type: 
  Country: None (occurrence: None)
  Receive Date: 20090821
  Receipt Date: 20090812
  Transmission Date: 20100115
  Serious: Yes (Death, Hospitalization)
  Sender: FDA-Public Use
  Company Number: GB-JNJFOC-20090803706

PATIENT
  Age: 73 Year
  Sex: Female

DRUGS (11)
  1. REMICADE [Suspect]
     Indication: RHEUMATOID ARTHRITIS
     Route: 042
  2. SULFASALAZINE [Concomitant]
  3. METHOTREXATE [Concomitant]
  4. PREDNISOLONE [Concomitant]
  5. DOXAZOSIN [Concomitant]
  6. FOLIC ACID [Concomitant]
  7. HYDROXYCHLOROQUINE SULFATE [Concomitant]
  8. IRBESARTAN [Concomitant]
  9. METFORMIN HCL [Concomitant]
  10. NAPROXEN [Concomitant]
  11. TRAMADOL [Concomitant]

REACTIONS (4)
  - ATRIAL FIBRILLATION [None]
  - PNEUMONIA [None]
  - PULMONARY FIBROSIS [None]
  - RENAL FAILURE [None]
